FAERS Safety Report 13478727 (Version 7)
Quarter: 2020Q1

REPORT INFORMATION
  Report Type: Spontaneous
  Country: US (occurrence: US)
  Receive Date: 20170425
  Receipt Date: 20200310
  Transmission Date: 20200409
  Serious: Yes (Hospitalization, Disabling, Other)
  Sender: FDA-Public Use
  Company Number: US-009507513-1704USA012611

PATIENT
  Sex: Female

DRUGS (2)
  1. DILANTIN [Concomitant]
     Active Substance: PHENYTOIN
     Indication: SEIZURE
     Dosage: 1-3 TIMES A DAY
     Dates: start: 1977
  2. FOSAMAX [Suspect]
     Active Substance: ALENDRONATE SODIUM
     Indication: OSTEOPOROSIS
     Dosage: 70 MG ONCE A WEEK
     Route: 048
     Dates: start: 2002, end: 2008

REACTIONS (15)
  - Limb operation [Unknown]
  - Brain operation [Unknown]
  - Low turnover osteopathy [Not Recovered/Not Resolved]
  - Fracture delayed union [Unknown]
  - Stress fracture [Unknown]
  - Adverse event [Unknown]
  - Spinal compression fracture [Unknown]
  - Amnesia [Unknown]
  - Fall [Unknown]
  - Fall [Unknown]
  - Femur fracture [Unknown]
  - Rheumatoid arthritis [Unknown]
  - Subdural haematoma [Unknown]
  - Haematoma [Recovered/Resolved with Sequelae]
  - Somatic dysfunction [Unknown]

NARRATIVE: CASE EVENT DATE: 20030131
